FAERS Safety Report 8528415-0 (Version None)
Quarter: 2012Q3

REPORT INFORMATION
  Report Type: 
  Country: None (occurrence: None)
  Receive Date: 20120722
  Receipt Date: 20120712
  Transmission Date: 20120928
  Serious: No
  Sender: FDA-Public Use
  Company Number: US-009507513-1207USA003064

PATIENT

DRUGS (2)
  1. ZOCOR [Suspect]
     Dosage: 20 MG, UNK
     Route: 048
  2. TRICOR [Concomitant]
     Dosage: UNK

REACTIONS (1)
  - MUSCLE DISORDER [None]
